FAERS Safety Report 5782017-8 (Version None)
Quarter: 2008Q2

REPORT INFORMATION
  Report Type: 
  Country: None (occurrence: None)
  Receive Date: 20080623
  Receipt Date: 20080612
  Transmission Date: 20081010
  Serious: Yes (Other)
  Sender: FDA-Public Use
  Company Number: JP-ASTRAZENECA-2008AP04729

PATIENT
  Age: 53 Year
  Sex: Female

DRUGS (2)
  1. SEROQUEL [Suspect]
     Dates: start: 20070601, end: 20070601
  2. MYSLEE [Suspect]
     Dates: start: 20070601, end: 20070601

REACTIONS (1)
  - DRUG ERUPTION [None]
